FAERS Safety Report 14892373 (Version 1)
Quarter: 2018Q2

REPORT INFORMATION
  Report Type: Spontaneous
  Country: US (occurrence: US)
  Receive Date: 20180426
  Receipt Date: 20180426
  Transmission Date: 20180711
  Serious: Yes (Other)
  Sender: FDA-Public Use
  Company Number: None

PATIENT
  Age: 41 Year
  Sex: Female
  Weight: 77.4 kg

DRUGS (1)
  1. SILVER NITRATE. [Suspect]
     Active Substance: SILVER NITRATE
     Indication: WOUND TREATMENT
     Dates: start: 20180420, end: 20180420

REACTIONS (5)
  - Rash [None]
  - Skin lesion [None]
  - Application site pain [None]
  - Application site erythema [None]
  - Lymphadenopathy [None]

NARRATIVE: CASE EVENT DATE: 20180420
